FAERS Safety Report 7000003-7 (Version None)
Quarter: 2010Q3

REPORT INFORMATION
  Report Type: 
  Country: None (occurrence: None)
  Receive Date: 20100920
  Receipt Date: 20071112
  Transmission Date: 20110219
  Serious: Yes (Other)
  Sender: FDA-Public Use
  Company Number: US-ASTRAZENECA-2007UW18311

PATIENT
  Age: 812 Month
  Sex: Male
  Weight: 83.9 kg

DRUGS (24)
  1. SEROQUEL [Suspect]
     Indication: SLEEP DISORDER
     Dosage: 25-100 MG
     Route: 048
     Dates: start: 20010101, end: 20090201
  2. SEROQUEL [Suspect]
     Indication: INSOMNIA
     Dosage: 25-100 MG
     Route: 048
     Dates: start: 20010101, end: 20090201
  3. SEROQUEL [Suspect]
     Route: 048
     Dates: start: 20040823
  4. SEROQUEL [Suspect]
     Route: 048
     Dates: start: 20040823
  5. ACYCLOVIR [Concomitant]
     Indication: HERPES ZOSTER
     Dates: start: 20040820
  6. FLOVENT [Concomitant]
     Dates: start: 20040823
  7. SPIRIVA [Concomitant]
     Dosage: 110 MCG TWO PUFFS B.I.D
     Dates: start: 20040823
  8. SEREVENT [Concomitant]
     Dosage: ONE PUFF B.I.D
     Dates: start: 20040823
  9. LEVAQUIN [Concomitant]
     Route: 048
     Dates: start: 20040823
  10. PREDNISONE [Concomitant]
     Indication: CHRONIC OBSTRUCTIVE PULMONARY DISEASE
     Dosage: STRENGTH: 60 MG TO 10 MG TAPERING
     Route: 048
     Dates: start: 20010725
  11. CARDIZEM [Concomitant]
     Route: 048
     Dates: start: 20020123
  12. PROTONIX [Concomitant]
     Dates: start: 20040731
  13. ZETIA [Concomitant]
     Route: 048
     Dates: start: 20040731
  14. IMDUR [Concomitant]
     Indication: CORONARY ARTERY DISEASE
     Route: 048
     Dates: start: 20040820
  15. ASPIRIN [Concomitant]
     Indication: CORONARY ARTERY DISEASE
     Route: 048
     Dates: start: 20020123
  16. LASIX [Concomitant]
     Dosage: STRENGTH: 40 MG TO 20 MG
     Route: 048
     Dates: start: 20040731
  17. TRIDIL [Concomitant]
     Dates: start: 20020123
  18. HEPARIN [Concomitant]
     Dates: start: 20020123
  19. ARICEPT [Concomitant]
     Dates: start: 20010725
  20. REMERON [Concomitant]
     Dates: start: 20010725
  21. PROSCAR [Concomitant]
     Dates: start: 20010725
  22. FLOMAX [Concomitant]
     Dates: start: 20010725
  23. BACTRIM [Concomitant]
     Dates: start: 20010725
  24. PLAVIX [Concomitant]
     Indication: CORONARY ARTERY DISEASE
     Route: 048
     Dates: start: 20040731

REACTIONS (4)
  - DIABETES MELLITUS [None]
  - DIABETIC COMA [None]
  - TYPE 1 DIABETES MELLITUS [None]
  - TYPE 2 DIABETES MELLITUS [None]
